FAERS Safety Report 12271538 (Version 1)
Quarter: 2016Q2

REPORT INFORMATION
  Report Type: Spontaneous
  Country: US (occurrence: US)
  Receive Date: 20160415
  Receipt Date: 20160415
  Transmission Date: 20160815
  Serious: No
  Sender: FDA-Public Use
  Company Number: US-NOVOPROD-475735

PATIENT
  Age: 60 Year
  Sex: Female

DRUGS (2)
  1. SAXENDA [Suspect]
     Active Substance: LIRAGLUTIDE
     Indication: WEIGHT DECREASED
     Dosage: 3.0 MG, UNK
     Route: 058
     Dates: start: 20151208
  2. SAXENDA [Suspect]
     Active Substance: LIRAGLUTIDE
     Dosage: 2.4 MG, QD
     Route: 058

REACTIONS (4)
  - Increased appetite [Recovered/Resolved]
  - Dyspepsia [Recovered/Resolved]
  - Drug ineffective [Recovered/Resolved]
  - Wrong technique in product usage process [Recovered/Resolved]

NARRATIVE: CASE EVENT DATE: 20151208
